FAERS Safety Report 7360965-5 (Version None)
Quarter: 2011Q1

REPORT INFORMATION
  Report Type: 
  Country: None (occurrence: None)
  Receive Date: 20110318
  Receipt Date: 20110309
  Transmission Date: 20110831
  Serious: Yes (Death)
  Sender: FDA-Public Use
  Company Number: JP-PFIZER INC-2011051741

PATIENT
  Age: 59 Year
  Sex: Female
  Weight: 49.9 kg

DRUGS (4)
  1. CORTICOSTEROIDS [Concomitant]
  2. CELECOX [Suspect]
     Dosage: 400 MG, DAILY
     Route: 048
     Dates: start: 20080207, end: 20080209
  3. CELECOX [Suspect]
     Indication: RHEUMATOID ARTHRITIS
     Dosage: 400 MG/DAILY
     Route: 048
     Dates: start: 20100120
  4. INDOMETACIN [Concomitant]

REACTIONS (1)
  - LUNG NEOPLASM MALIGNANT [None]
